FAERS Safety Report 13518259 (Version 3)
Quarter: 2017Q2

REPORT INFORMATION
  Report Type: Report from Study
  Country: MX (occurrence: MX)
  Receive Date: 20170505
  Receipt Date: 20170516
  Transmission Date: 20170830
  Serious: Yes (Death)
  Sender: FDA-Public Use
  Company Number: MX-ROCHE-1870833

PATIENT
  Age: 61 Year
  Sex: Female
  Weight: 58 kg

DRUGS (3)
  1. BEVACIZUMAB [Suspect]
     Active Substance: BEVACIZUMAB
     Indication: CERVIX CANCER METASTATIC
     Dosage: DATE OF MOST RECENT DOSE: 18/AUG/2016
     Route: 042
     Dates: start: 20151218
  2. CARBOPLATIN. [Suspect]
     Active Substance: CARBOPLATIN
     Indication: CERVIX CANCER METASTATIC
     Dosage: DATE OF MOST RECENT DOSE: 16/MAR/2016
     Route: 042
     Dates: start: 20151218
  3. PACLITAXEL. [Suspect]
     Active Substance: PACLITAXEL
     Indication: CERVIX CANCER METASTATIC
     Dosage: DATE OF MOST RECENT DOSE: 15/APR/2016
     Route: 042
     Dates: start: 20151218

REACTIONS (1)
  - Haemorrhagic stroke [Fatal]

NARRATIVE: CASE EVENT DATE: 20161101
